FAERS Safety Report 5453495-9 (Version None)
Quarter: 2007Q3

REPORT INFORMATION
  Report Type: 
  Country: None (occurrence: None)
  Receive Date: 20070913
  Receipt Date: 20070905
  Transmission Date: 20080115
  Serious: Yes (Other)
  Sender: FDA-Public Use
  Company Number: 2007-04092

PATIENT
  Age: 29 Year
  Sex: Female

DRUGS (1)
  1. INFED [Suspect]
     Indication: IRON DEFICIENCY ANAEMIA
     Dosage: SINGLE (4 MINUTE INFUSION), INTRAVENOUS
     Route: 042
     Dates: start: 20070607, end: 20070607

REACTIONS (4)
  - ANAPHYLACTIC REACTION [None]
  - ANXIETY [None]
  - ARRHYTHMIA [None]
  - INFUSION RELATED REACTION [None]
